FAERS Safety Report 7156413-0 (Version None)
Quarter: 2010Q4

REPORT INFORMATION
  Report Type: 
  Country: None (occurrence: None)
  Receive Date: 20101214
  Receipt Date: 20101206
  Transmission Date: 20110411
  Serious: Yes (Hospitalization, Other)
  Sender: FDA-Public Use
  Company Number: US-AMGEN-USASP2010007806

PATIENT

DRUGS (1)
  1. ENBREL [Suspect]
     Indication: PSORIASIS
     Dates: start: 20070917, end: 20100201

REACTIONS (6)
  - KIDNEY INFECTION [None]
  - NEPHROLITHIASIS [None]
  - PARATHYROID GLAND ENLARGEMENT [None]
  - PNEUMONIA [None]
  - PROSTATOMEGALY [None]
  - SEPTIC SHOCK [None]
